FAERS Safety Report 19667135 (Version 2)
Quarter: 2021Q3

REPORT INFORMATION
  Report Type: Spontaneous
  Country: US (occurrence: US)
  Receive Date: 20210806
  Receipt Date: 20210827
  Transmission Date: 20211014
  Serious: No
  Sender: FDA-Public Use
  Company Number: US-JNJFOC-20210753438

PATIENT
  Age: 42 Year
  Sex: Female
  Weight: 68.04 kg

DRUGS (4)
  1. TYLENOL [Suspect]
     Active Substance: ACETAMINOPHEN
     Indication: HEAD DISCOMFORT
     Route: 065
     Dates: start: 2021
  2. COVID?19 VACCINE [Concomitant]
     Dosage: INJECTION IN RIGHT ARM
     Route: 065
     Dates: start: 20210708, end: 20210708
  3. COVID?19 VACCINE [Concomitant]
     Indication: IMMUNISATION
     Dosage: INJECTION IN RIGHT ARM
     Route: 065
     Dates: start: 20210616, end: 20210616
  4. ADVIL [Concomitant]
     Active Substance: IBUPROFEN
     Indication: HEAD DISCOMFORT
     Route: 065

REACTIONS (1)
  - Drug ineffective [Unknown]

NARRATIVE: CASE EVENT DATE: 2021
